FAERS Safety Report 15937093 (Version 1)
Quarter: 2019Q1

REPORT INFORMATION
  Report Type: Spontaneous
  Country: AR (occurrence: AR)
  Receive Date: 20190208
  Receipt Date: 20190208
  Transmission Date: 20190417
  Serious: Yes (Death, Other)
  Sender: FDA-Public Use
  Company Number: AR-ACTELION-A-CH2018-175560

PATIENT
  Age: 36 Year
  Sex: Female
  Weight: 85 kg

DRUGS (2)
  1. VELETRI [Suspect]
     Active Substance: EPOPROSTENOL
     Indication: PULMONARY ARTERIAL HYPERTENSION
     Dosage: UNK
     Route: 042
     Dates: start: 201806
  2. OPSUMIT [Concomitant]
     Active Substance: MACITENTAN

REACTIONS (3)
  - Product supply issue [Not Recovered/Not Resolved]
  - Death [Fatal]
  - Dyspnoea [Not Recovered/Not Resolved]

NARRATIVE: CASE EVENT DATE: 20180713
